FAERS Safety Report 20248054 (Version 1)
Quarter: 2021Q4

REPORT INFORMATION
  Report Type: Spontaneous
  Country: JP (occurrence: JP)
  Receive Date: 20211229
  Receipt Date: 20211229
  Transmission Date: 20220303
  Serious: Yes (Life-Threatening, Hospitalization, Other)
  Sender: FDA-Public Use
  Company Number: JP-ABBVIE-21K-087-4192606-00

PATIENT
  Age: 43 Year
  Sex: Male
  Weight: 75 kg

DRUGS (11)
  1. SEVOFLURANE [Suspect]
     Active Substance: SEVOFLURANE
     Indication: Induction and maintenance of anaesthesia
     Dosage: 0.4-3 %
     Route: 055
     Dates: start: 20110223, end: 20110223
  2. PROPOFOL [Suspect]
     Active Substance: PROPOFOL
     Indication: Sedation
     Route: 041
     Dates: start: 20110223, end: 20110302
  3. FENTANYL CITRATE [Suspect]
     Active Substance: FENTANYL CITRATE
     Indication: Light anaesthesia
     Dosage: 0.3 - 2 ML
     Route: 042
     Dates: start: 20110223, end: 20110223
  4. FENTANYL CITRATE [Suspect]
     Active Substance: FENTANYL CITRATE
     Dosage: 12.5 MCG/HR
     Route: 041
     Dates: start: 20110223, end: 20110308
  5. ULTIVA [Concomitant]
     Active Substance: REMIFENTANIL HYDROCHLORIDE
     Indication: Induction of anaesthesia
     Route: 041
     Dates: start: 20110223, end: 20110223
  6. NEOSYNESIN [Concomitant]
     Active Substance: PHENYLEPHRINE HYDROCHLORIDE
     Indication: Blood pressure increased
     Dosage: 0.1-0.2 MG?SEVEN TIMES
     Route: 042
     Dates: start: 20110223, end: 20110223
  7. VECURONIUM BROMIDE [Concomitant]
     Active Substance: VECURONIUM BROMIDE
     Indication: Hypotonia
     Dosage: 1-7 MG?NINE TIMES
     Route: 042
     Dates: start: 20110223, end: 20110223
  8. DOPAMINE HYDROCHLORIDE [Concomitant]
     Active Substance: DOPAMINE HYDROCHLORIDE
     Indication: Blood pressure increased
     Dosage: 3-15 MG/HR
     Route: 041
     Dates: start: 20110223, end: 20110223
  9. NOREPINEPHRINE [Concomitant]
     Active Substance: NOREPINEPHRINE
     Indication: Blood pressure increased
     Dosage: 0.1-0.4 MCG/KG/HR
     Route: 041
     Dates: start: 20110223, end: 20110223
  10. KETALAR [Concomitant]
     Active Substance: KETAMINE HYDROCHLORIDE
     Indication: Induction of anaesthesia
     Route: 041
     Dates: start: 20110223, end: 20110223
  11. CEFMETAZOLE SODIUM [Concomitant]
     Active Substance: CEFMETAZOLE SODIUM
     Indication: Infection prophylaxis
     Route: 041
     Dates: start: 20110223, end: 20110223

REACTIONS (2)
  - Rhabdomyolysis [Recovered/Resolved]
  - Hyperthermia [Recovered/Resolved]

NARRATIVE: CASE EVENT DATE: 20110302
